FAERS Safety Report 7376164-7 (Version None)
Quarter: 2011Q1

REPORT INFORMATION
  Report Type: 
  Country: None (occurrence: None)
  Receive Date: 20110325
  Receipt Date: 20110302
  Transmission Date: 20110831
  Serious: No
  Sender: FDA-Public Use
  Company Number: US-B.I. PHARMACEUTICALS,INC./RIDGEFIELD-2011-BP-06176BP

PATIENT
  Sex: Male

DRUGS (9)
  1. AMIODARONE HCL [Concomitant]
     Indication: ATRIAL FIBRILLATION
  2. TERAZOSIN HCL [Concomitant]
     Indication: URINARY RETENTION
  3. METOPROLOL [Concomitant]
     Indication: ATRIAL FIBRILLATION
  4. ZOCOR [Concomitant]
     Indication: BLOOD CHOLESTEROL INCREASED
  5. PROTONIX [Concomitant]
     Indication: COLITIS
  6. PRADAXA [Suspect]
     Indication: ATRIAL FIBRILLATION
     Dosage: 300 MG
     Route: 048
     Dates: start: 20110213
  7. AVODART [Concomitant]
     Indication: PROSTATOMEGALY
  8. LISINOPRIL [Concomitant]
     Indication: HYPERTENSION
  9. ASACOL [Concomitant]
     Indication: COLITIS

REACTIONS (3)
  - NAUSEA [None]
  - FEELING OF BODY TEMPERATURE CHANGE [None]
  - DIARRHOEA [None]
